FAERS Safety Report 21727608 (Version 1)
Quarter: 2022Q4

REPORT INFORMATION
  Report Type: Spontaneous
  Country: US (occurrence: US)
  Receive Date: 20221214
  Receipt Date: 20221214
  Transmission Date: 20230113
  Serious: Yes (Other)
  Sender: FDA-Public Use
  Company Number: US-PFIZER INC-202201363144

PATIENT
  Age: 67 Year
  Sex: Female

DRUGS (1)
  1. IBRANCE [Suspect]
     Active Substance: PALBOCICLIB
     Dosage: UNK

REACTIONS (8)
  - Neuropathy peripheral [Unknown]
  - Intervertebral disc degeneration [Unknown]
  - Renal disorder [Unknown]
  - Dysstasia [Unknown]
  - Gait inability [Unknown]
  - Pain [Recovering/Resolving]
  - Dyspnoea [Unknown]
  - Hypoacusis [Unknown]
